FAERS Safety Report 5626352-2 (Version None)
Quarter: 2008Q1

REPORT INFORMATION
  Report Type: 
  Country: None (occurrence: None)
  Receive Date: 20080214
  Receipt Date: 20080208
  Transmission Date: 20080703
  Serious: No
  Sender: FDA-Public Use
  Company Number: DE-AVENTIS-200712652DE

PATIENT
  Age: 35 Year
  Sex: Female

DRUGS (5)
  1. ARAVA [Suspect]
     Indication: POLYARTHRITIS
     Route: 048
     Dates: start: 20070601
  2. METHOTREXATE SODIUM [Concomitant]
     Indication: POLYARTHRITIS
     Route: 048
     Dates: start: 20030101
  3. FOLSAEURE [Concomitant]
     Indication: POLYARTHRITIS
     Dosage: DOSE: NOT REPORTED
     Route: 048
     Dates: start: 20030101
  4. CORTISON [Concomitant]
     Indication: POLYARTHRITIS
     Route: 048
     Dates: start: 20030101
  5. BIVIOL [Concomitant]
     Indication: CONTRACEPTION
     Dosage: DOSE: NOT REPORTED

REACTIONS (2)
  - ABORTION INDUCED [None]
  - DRUG EXPOSURE DURING PREGNANCY [None]
